FAERS Safety Report 17773326 (Version 1)
Quarter: 2020Q2

REPORT INFORMATION
  Report Type: Spontaneous
  Country: JP (occurrence: JP)
  Receive Date: 20200513
  Receipt Date: 20200513
  Transmission Date: 20200714
  Serious: Yes (Other)
  Sender: FDA-Public Use
  Company Number: JP-MICRO LABS LIMITED-ML2020-01524

PATIENT
  Age: 27 Year
  Sex: Male

DRUGS (8)
  1. LEVOCETIRIZINE [Suspect]
     Active Substance: LEVOCETIRIZINE
     Indication: ANHIDROSIS
  2. MONTELUKAST [Suspect]
     Active Substance: MONTELUKAST SODIUM
     Indication: ANHIDROSIS
  3. CICLOSPORIN [Suspect]
     Active Substance: CYCLOSPORINE
     Indication: ANHIDROSIS
  4. METHYLPREDNISOLONE. [Suspect]
     Active Substance: METHYLPREDNISOLONE
     Indication: ANHIDROSIS
     Dosage: 500 MG/DAY FOR 3 DAYS
  5. SAIREI-TO [Suspect]
     Active Substance: UNSPECIFIED INGREDIENT
     Indication: ANHIDROSIS
  6. GABAPENTIN. [Suspect]
     Active Substance: GABAPENTIN
     Indication: ANHIDROSIS
  7. LAFUTIDINE [Suspect]
     Active Substance: LAFUTIDINE
     Indication: ANHIDROSIS
  8. PREGABALIN. [Suspect]
     Active Substance: PREGABALIN
     Indication: ANHIDROSIS

REACTIONS (1)
  - Drug ineffective [Recovering/Resolving]
